FAERS Safety Report 6959525-7 (Version None)
Quarter: 2010Q3

REPORT INFORMATION
  Report Type: 
  Country: None (occurrence: None)
  Receive Date: 20100827
  Receipt Date: 20100820
  Transmission Date: 20110219
  Serious: Yes (Death, Hospitalization, Other)
  Sender: FDA-Public Use
  Company Number: TPA2010A04624

PATIENT
  Age: 71 Year
  Sex: Male

DRUGS (9)
  1. ULORIC [Suspect]
     Indication: GOUT
     Dosage: 40 MG, 2 IN 1 D, PER ORAL
     Route: 048
     Dates: end: 20100716
  2. JANUVIA [Concomitant]
  3. LEVEMIR [Concomitant]
  4. GLIPIZIDE [Concomitant]
  5. AVAPRO [Concomitant]
  6. ALDACTONE [Concomitant]
  7. LIPITOR [Concomitant]
  8. LANOXIN [Concomitant]
  9. PLAVIX [Concomitant]

REACTIONS (7)
  - CHOLECYSTITIS [None]
  - CHOLELITHIASIS [None]
  - DIALYSIS [None]
  - LOCALISED INFECTION [None]
  - POSTOPERATIVE WOUND INFECTION [None]
  - RENAL FAILURE [None]
  - TOE AMPUTATION [None]
